FAERS Safety Report 4686711-1 (Version None)
Quarter: 2005Q2

REPORT INFORMATION
  Report Type: 
  Country: None (occurrence: None)
  Receive Date: 20050608
  Receipt Date: 20050526
  Transmission Date: 20051028
  Serious: Yes (Death, Other)
  Sender: FDA-Public Use
  Company Number: 2005081983

PATIENT
  Age: 64 Year
  Sex: Male

DRUGS (2)
  1. ZYVOX [Suspect]
     Indication: WOUND DEBRIDEMENT
     Dosage: 1200 MG (600 MG, 2 IN 1 D), INTRAVENOUS
     Route: 042
     Dates: start: 20050421, end: 20050505
  2. TINZAPARIN SODIUM (HEPARIN-FRACTION, SODIUM SALT) [Concomitant]

REACTIONS (1)
  - THROMBOCYTOPENIA [None]
